FAERS Safety Report 16735681 (Version 2)
Quarter: 2019Q4

REPORT INFORMATION
  Report Type: Spontaneous
  Country: US (occurrence: US)
  Receive Date: 20190823
  Receipt Date: 20191023
  Transmission Date: 20200122
  Serious: No
  Sender: FDA-Public Use
  Company Number: US-PFIZER INC-2019356807

PATIENT

DRUGS (1)
  1. DEPO-PROVERA [Suspect]
     Active Substance: MEDROXYPROGESTERONE ACETATE
     Indication: CONTRACEPTION
     Dosage: 104 MG, UNK, [(EVERY 12 WEEKS]
     Route: 058

REACTIONS (3)
  - Incorrect dose administered [Unknown]
  - Injection site swelling [Unknown]
  - Injection site extravasation [Unknown]
